FAERS Safety Report 9939317 (Version 1)
Quarter: 2014Q1

REPORT INFORMATION
  Report Type: Report from Study
  Country: US (occurrence: US)
  Receive Date: 20140303
  Receipt Date: 20140303
  Transmission Date: 20141002
  Serious: No
  Sender: FDA-Public Use
  Company Number: US-ABBVIE-13P-163-1034645-00

PATIENT
  Age: 29 Year
  Sex: Female
  Weight: 83.99 kg

DRUGS (7)
  1. HUMIRA PEN [Suspect]
     Indication: CROHN^S DISEASE
     Dates: start: 2012
  2. PENTASA [Concomitant]
     Indication: CROHN^S DISEASE
  3. ACIPHEX [Concomitant]
     Indication: GASTROOESOPHAGEAL REFLUX DISEASE
  4. PREDNISONE [Concomitant]
     Indication: CROHN^S DISEASE
  5. VITAMIN D NOS [Concomitant]
     Indication: VITAMIN SUPPLEMENTATION
  6. BENTYL [Concomitant]
     Indication: ABDOMINAL PAIN UPPER
  7. IRON [Concomitant]
     Indication: IRON DEFICIENCY

REACTIONS (5)
  - Erythema [Not Recovered/Not Resolved]
  - Injection site haemorrhage [Recovered/Resolved]
  - Injection site pain [Not Recovered/Not Resolved]
  - Incorrect dose administered [Not Recovered/Not Resolved]
  - Injury associated with device [Unknown]
